FAERS Safety Report 9164948 (Version 1)
Quarter: 2013Q1

REPORT INFORMATION
  Report Type: Spontaneous
  Country: US (occurrence: None)
  Receive Date: 20130226
  Receipt Date: 20130226
  Transmission Date: 20140127
  Serious: Yes (Hospitalization, Other)
  Sender: FDA-Public Use
  Company Number: 2013P1002409

PATIENT
  Age: 18 Year
  Sex: Male

DRUGS (2)
  1. LEVETIRACETAM [Suspect]
     Indication: CONVULSION
  2. PHENYTOIN [Suspect]
     Indication: CONVULSION

REACTIONS (8)
  - Rash maculo-papular [None]
  - Pruritus [None]
  - Eye swelling [None]
  - Transaminases increased [None]
  - Cough [None]
  - Pyrexia [None]
  - Chromaturia [None]
  - Drug reaction with eosinophilia and systemic symptoms [None]
